FAERS Safety Report 4665927-4 (Version None)
Quarter: 2005Q2

REPORT INFORMATION
  Report Type: 
  Country: None (occurrence: None)
  Receive Date: 20050517
  Receipt Date: 20050517
  Transmission Date: 20051028
  Serious: No
  Sender: FDA-Public Use
  Company Number: None

PATIENT
  Age: 52 Year
  Sex: Male
  Weight: 88.4514 kg

DRUGS (2)
  1. FENTANYL [Suspect]
     Indication: LEG AMPUTATION
     Dosage: 50 MCG THREE PATCHES TOPICALLY CHANGE Q 48 H
     Route: 061
     Dates: start: 20050430
  2. FENTANYL [Suspect]
     Indication: PHANTOM PAIN
     Dosage: 50 MCG THREE PATCHES TOPICALLY CHANGE Q 48 H
     Route: 061
     Dates: start: 20050430

REACTIONS (2)
  - DRUG INEFFECTIVE [None]
  - PHARMACEUTICAL PRODUCT COMPLAINT [None]
